FAERS Safety Report 15560673 (Version 1)
Quarter: 2018Q4

REPORT INFORMATION
  Report Type: Spontaneous
  Country: JP (occurrence: JP)
  Receive Date: 20181029
  Receipt Date: 20181029
  Transmission Date: 20190205
  Serious: Yes (Hospitalization)
  Sender: FDA-Public Use
  Company Number: JP-PFIZER INC-2018436223

PATIENT
  Age: 55 Year
  Sex: Male

DRUGS (3)
  1. IODINE. [Concomitant]
     Active Substance: IODINE
     Indication: THYROTOXIC CRISIS
  2. HYDROCORTISONE. [Suspect]
     Active Substance: HYDROCORTISONE
     Indication: THYROTOXIC CRISIS
     Dosage: 300 MG, DAILY
  3. THIAMAZOLE [Concomitant]
     Active Substance: METHIMAZOLE
     Indication: THYROTOXIC CRISIS
     Dosage: 40 MG, DAILY

REACTIONS (1)
  - Pneumatosis intestinalis [Recovering/Resolving]
